FAERS Safety Report 18113136 (Version 1)
Quarter: 2020Q3

REPORT INFORMATION
  Report Type: Spontaneous
  Country: US (occurrence: US)
  Receive Date: 20200805
  Receipt Date: 20200805
  Transmission Date: 20201103
  Serious: Yes (Other)
  Sender: FDA-Public Use
  Company Number: US-SUN PHARMACEUTICAL INDUSTRIES LTD-2020R1-255144

PATIENT
  Age: 35 Year
  Sex: Male

DRUGS (1)
  1. IBUPROFEN. [Suspect]
     Active Substance: IBUPROFEN
     Indication: BACK PAIN
     Dosage: 2,400 TO 3,200 MG DAILY FOR SEVERAL MONTHS
     Route: 065

REACTIONS (11)
  - Metabolic acidosis [Unknown]
  - Myalgia [Unknown]
  - Muscular weakness [Unknown]
  - Hypokalaemia [Recovered/Resolved]
  - Hyporeflexia [Unknown]
  - Electrocardiogram T wave abnormal [Unknown]
  - Asthenia [Unknown]
  - Abdominal pain [Unknown]
  - Vomiting [Unknown]
  - Hypophagia [Unknown]
  - Nausea [Unknown]
